FAERS Safety Report 12930378 (Version 1)
Quarter: 2016Q4

REPORT INFORMATION
  Report Type: Spontaneous
  Country: US (occurrence: US)
  Receive Date: 20161110
  Receipt Date: 20161110
  Transmission Date: 20170207
  Serious: Yes (Hospitalization)
  Sender: FDA-Public Use
  Company Number: None

PATIENT
  Age: 53 Year
  Sex: Male

DRUGS (15)
  1. METOPROLOL TARTRATE. [Concomitant]
     Active Substance: METOPROLOL TARTRATE
  2. CLONIDINE. [Concomitant]
     Active Substance: CLONIDINE
  3. AMLODIPINE [Concomitant]
     Active Substance: AMLODIPINE BESYLATE
  4. FLUTICASONE [Concomitant]
     Active Substance: FLUTICASONE\FLUTICASONE PROPIONATE
  5. CITALOPRAM [Concomitant]
     Active Substance: CITALOPRAM HYDROBROMIDE
  6. FENOFIBRATE. [Concomitant]
     Active Substance: FENOFIBRATE
  7. NASOGEL [Concomitant]
  8. HYDRALAZINE [Concomitant]
     Active Substance: HYDRALAZINE HYDROCHLORIDE
  9. LEVOTHRYROXIN [Concomitant]
  10. NASONEX [Concomitant]
     Active Substance: MOMETASONE FUROATE
  11. MOMETASONE [Concomitant]
     Active Substance: MOMETASONE
  12. FUROSEMIDE. [Concomitant]
     Active Substance: FUROSEMIDE
  13. CALC ACETATE [Concomitant]
  14. INLYTA [Suspect]
     Active Substance: AXITINIB
     Indication: METASTATIC NEOPLASM
     Route: 048
     Dates: start: 201207
  15. HYDROC/APAP [Concomitant]

REACTIONS (1)
  - Catheter placement [None]

NARRATIVE: CASE EVENT DATE: 20161103
